FAERS Safety Report 11940176 (Version 1)
Quarter: 2016Q1

REPORT INFORMATION
  Report Type: Spontaneous
  Country: CA (occurrence: CA)
  Receive Date: 20160122
  Receipt Date: 20160122
  Transmission Date: 20160526
  Serious: Yes (Death, Life-Threatening, Hospitalization)
  Sender: FDA-Public Use
  Company Number: CA-009507513-1601CAN007537

PATIENT
  Age: 60 Year
  Sex: Male
  Weight: 142 kg

DRUGS (19)
  1. LAX A DAY [Concomitant]
  2. AMLODIPINE [Concomitant]
     Active Substance: AMLODIPINE BESYLATE
  3. CARVEDILOL. [Concomitant]
     Active Substance: CARVEDILOL
  4. CLOTRIMAZOLE. [Concomitant]
     Active Substance: CLOTRIMAZOLE
  5. FOLIC ACID. [Concomitant]
     Active Substance: FOLIC ACID
  6. KEPPRA [Concomitant]
     Active Substance: LEVETIRACETAM
  7. MAGNESIUM (UNSPECIFIED) [Concomitant]
     Active Substance: MAGNESIUM
  8. THIAMINE. [Concomitant]
     Active Substance: THIAMINE
  9. ASCORBIC ACID. [Concomitant]
     Active Substance: ASCORBIC ACID
  10. FUROSEMIDE. [Concomitant]
     Active Substance: FUROSEMIDE
  11. ELECTROLYTES (UNSPECIFIED) (+) SODIUM LACTATE [Concomitant]
     Active Substance: ELECTROLYTES NOS\SODIUM LACTATE
  12. VANCOMYCIN [Concomitant]
     Active Substance: VANCOMYCIN
  13. INVANZ [Suspect]
     Active Substance: ERTAPENEM SODIUM
     Indication: OSTEITIS
     Dosage: 1000 MG, QD
     Route: 042
  14. FERROUS SULFATE [Concomitant]
     Active Substance: FERROUS SULFATE\FERROUS SULFATE, DRIED
  15. TYLENOL [Concomitant]
     Active Substance: ACETAMINOPHEN
  16. VENLAFAXINE HYDROCHLORIDE. [Concomitant]
     Active Substance: VENLAFAXINE HYDROCHLORIDE
  17. ATIVAN [Concomitant]
     Active Substance: LORAZEPAM
  18. CALCIUM (UNSPECIFIED) (+) VITAMIN D (UNSPECIFIED) [Concomitant]
     Active Substance: CALCIUM CARBONATE\VITAMIN D
  19. DILANTIN [Concomitant]
     Active Substance: PHENYTOIN

REACTIONS (7)
  - Hypoalbuminaemia [Fatal]
  - Blood pressure increased [Fatal]
  - Body temperature increased [Fatal]
  - Seizure [Fatal]
  - Acute kidney injury [Fatal]
  - Condition aggravated [Fatal]
  - Central nervous system infection [Fatal]
